FAERS Safety Report 9407851 (Version 1)
Quarter: 2013Q3

REPORT INFORMATION
  Report Type: Spontaneous
  Country: DE (occurrence: PL)
  Receive Date: 20130718
  Receipt Date: 20130718
  Transmission Date: 20140515
  Serious: Yes (Other)
  Sender: FDA-Public Use
  Company Number: DE-ACTELION-A-US2013-86069

PATIENT
  Sex: Female

DRUGS (1)
  1. VENTAVIS BAYER SCHERING [Suspect]
     Indication: VASODILATION PROCEDURE
     Dosage: UNK
     Route: 065
     Dates: start: 20130708, end: 20130708

REACTIONS (1)
  - Pulmonary oedema [Recovering/Resolving]
